FAERS Safety Report 6554587-3 (Version None)
Quarter: 2010Q1

REPORT INFORMATION
  Report Type: 
  Country: None (occurrence: None)
  Receive Date: 20100127
  Receipt Date: 20100114
  Transmission Date: 20100710
  Serious: Yes (Hospitalization, Disabling, Other)
  Sender: FDA-Public Use
  Company Number: MX-ELI_LILLY_AND_COMPANY-MX201001000557

PATIENT
  Age: 68 Year
  Sex: Male
  Weight: 78 kg

DRUGS (3)
  1. HUMULIN 70/30 [Suspect]
     Indication: TYPE 2 DIABETES MELLITUS
     Dosage: 40 IU, EACH MORNING
     Route: 058
     Dates: start: 20020101
  2. HUMULIN N [Suspect]
     Indication: TYPE 2 DIABETES MELLITUS
     Dosage: 10 IU, EACH EVENING
     Route: 058
     Dates: start: 20020101
  3. LOSARTAN POTASSIUM [Concomitant]
     Dosage: 40 MG, DAILY (1/D)
     Route: 065

REACTIONS (3)
  - BLOOD GLUCOSE INCREASED [None]
  - FALL [None]
  - HIP FRACTURE [None]
